FAERS Safety Report 5345416-4 (Version None)
Quarter: 2007Q2

REPORT INFORMATION
  Report Type: 
  Country: None (occurrence: None)
  Receive Date: 20070430
  Receipt Date: 20070102
  Transmission Date: 20071010
  Serious: Yes (Other)
  Sender: FDA-Public Use
  Company Number: HQWYE519805JAN07

PATIENT
  Age: 48 Year
  Sex: Female

DRUGS (1)
  1. ADVIL ALLERGY SINUS [Suspect]
     Indication: SINUS DISORDER
     Dosage: 1 CAPLET X 1, ORAL
     Route: 048
     Dates: start: 20061231, end: 20061231

REACTIONS (1)
  - CHEST PAIN [None]
